FAERS Safety Report 7047559-6 (Version None)
Quarter: 2010Q4

REPORT INFORMATION
  Report Type: 
  Country: None (occurrence: None)
  Receive Date: 20101015
  Receipt Date: 20101007
  Transmission Date: 20110411
  Serious: Yes (Other)
  Sender: FDA-Public Use
  Company Number: JP-PFIZER INC-2010127140

PATIENT
  Age: 27 Year
  Sex: Female

DRUGS (8)
  1. SERTRALINE HYDROCHLORIDE [Suspect]
     Indication: PANIC DISORDER
     Dosage: 25 MG, 1X/DAY
     Route: 048
     Dates: start: 20070507, end: 20070523
  2. SERTRALINE HYDROCHLORIDE [Suspect]
     Dosage: 50 MG, 1X/DAY
     Dates: start: 20070524, end: 20070606
  3. SERTRALINE HYDROCHLORIDE [Suspect]
     Dosage: 75 MG, 1X/DAY
     Dates: start: 20070607, end: 20070613
  4. SERTRALINE HYDROCHLORIDE [Suspect]
     Dosage: 100 MG, 1X/DAY
     Dates: start: 20070614, end: 20081008
  5. CONSTAN [Concomitant]
     Indication: PANIC DISORDER
     Dosage: UNK
     Route: 048
     Dates: start: 20070827
  6. BENZALIN [Concomitant]
     Indication: PANIC DISORDER
     Dosage: 10 MG, 1X/DAY
     Route: 048
     Dates: end: 20081008
  7. DEPAS [Concomitant]
     Indication: PANIC DISORDER
     Dosage: 1 MG, 1X/DAY
     Route: 048
     Dates: end: 20081008
  8. PAXIL [Concomitant]
     Indication: PANIC DISORDER
     Dosage: 30 MG, 1X/DAY
     Route: 048
     Dates: end: 20081008

REACTIONS (1)
  - ABORTION SPONTANEOUS [None]
